FAERS Safety Report 6302909-0 (Version None)
Quarter: 2009Q3

REPORT INFORMATION
  Report Type: 
  Country: None (occurrence: None)
  Receive Date: 20090810
  Receipt Date: 20090803
  Transmission Date: 20100115
  Serious: Yes (Hospitalization)
  Sender: FDA-Public Use
  Company Number: JP-EISAI INC.-E2090-00798-SPO-JP

PATIENT
  Sex: Male

DRUGS (5)
  1. EXCEGRAN [Suspect]
     Indication: EPILEPSY
     Route: 048
     Dates: start: 20000101, end: 20090710
  2. PREDONINE [Concomitant]
     Dates: start: 20000101
  3. MAGNESIUM OXIDE [Concomitant]
     Dates: start: 20070101
  4. TEGRETOL [Concomitant]
     Dates: start: 20090701
  5. AVONEX [Concomitant]
     Indication: MULTIPLE SCLEROSIS
     Dates: start: 20080601

REACTIONS (2)
  - PYREXIA [None]
  - RHABDOMYOLYSIS [None]
